FAERS Safety Report 8486431-1 (Version None)
Quarter: 2012Q3

REPORT INFORMATION
  Report Type: 
  Country: None (occurrence: None)
  Receive Date: 20120703
  Receipt Date: 20120619
  Transmission Date: 20120928
  Serious: Yes (Other)
  Sender: FDA-Public Use
  Company Number: CHPA2012US013340

PATIENT
  Age: 65 Year
  Sex: Female

DRUGS (1)
  1. PHENYLEPHRINE HCL [Suspect]
     Indication: NASOPHARYNGITIS
     Dosage: 1 DF, IN EACH NOSTRIL, 1 TO 2 TIMES A DAY
     Route: 045
     Dates: start: 20020101

REACTIONS (4)
  - ASTHMA [None]
  - OFF LABEL USE [None]
  - THERAPEUTIC RESPONSE UNEXPECTED [None]
  - UNDERDOSE [None]
